FAERS Safety Report 15394462 (Version 1)
Quarter: 2018Q3

REPORT INFORMATION
  Report Type: Report from Study
  Country: CA (occurrence: CA)
  Receive Date: 20180918
  Receipt Date: 20180918
  Transmission Date: 20181010
  Serious: Yes (Other)
  Sender: FDA-Public Use
  Company Number: CA-ROCHE-2185297

PATIENT
  Age: 30 Year
  Sex: Female

DRUGS (6)
  1. OMEGA 3 [Concomitant]
     Active Substance: OMEGA-3 FATTY ACIDS
  2. RITUXAN [Suspect]
     Active Substance: RITUXIMAB
     Indication: NEUROMYELITIS OPTICA SPECTRUM DISORDER
     Route: 042
     Dates: start: 20180413
  3. CURCUMA [Concomitant]
  4. ZOPICLONE [Concomitant]
     Active Substance: ZOPICLONE
  5. NAPROXEN. [Concomitant]
     Active Substance: NAPROXEN
     Route: 065
  6. VITAMIN B12 [Concomitant]
     Active Substance: CYANOCOBALAMIN

REACTIONS (5)
  - Thrombosis [Unknown]
  - Gingival swelling [Unknown]
  - Gingival bleeding [Unknown]
  - Herpes zoster [Recovered/Resolved]
  - Wound [Unknown]

NARRATIVE: CASE EVENT DATE: 201806
